FAERS Safety Report 6641918-9 (Version None)
Quarter: 2010Q1

REPORT INFORMATION
  Report Type: 
  Country: None (occurrence: None)
  Receive Date: 20100319
  Receipt Date: 20100308
  Transmission Date: 20100710
  Serious: Yes (Other)
  Sender: FDA-Public Use
  Company Number: PHHY2010CA05306

PATIENT
  Sex: Female

DRUGS (4)
  1. CLOZARIL [Suspect]
     Indication: SCHIZOPHRENIA
     Dosage: 200 MG, UNK
     Route: 048
     Dates: start: 19971013
  2. AMITRIPTYLINE HCL [Concomitant]
     Dosage: 25 MG, QHS
  3. OMEPRAZOLE [Concomitant]
     Dosage: 20 MG, QHS
  4. METFORMIN HYDROCHLORIDE [Concomitant]
     Dosage: 500 MG, BID

REACTIONS (2)
  - DIABETES MELLITUS [None]
  - LEG AMPUTATION [None]
